FAERS Safety Report 5142247-5 (Version None)
Quarter: 2006Q4

REPORT INFORMATION
  Report Type: 
  Country: None (occurrence: None)
  Receive Date: 20061102
  Receipt Date: 20050726
  Transmission Date: 20070319
  Serious: Yes (Other)
  Sender: FDA-Public Use
  Company Number: FR-ROCHE-412217

PATIENT
  Age: 26 Year
  Sex: Female

DRUGS (2)
  1. ROACCUTANE [Suspect]
     Indication: DRUG USE FOR UNKNOWN INDICATION
     Route: 065
     Dates: end: 20050601
  2. ETHINYL ESTRADIOL AND LEVONORGESTREL [Concomitant]
     Dosage: STOPPED BEFORE 15 JUN 2005.

REACTIONS (2)
  - NO ADVERSE EFFECT [None]
  - PREGNANCY [None]
